FAERS Safety Report 9457756 (Version 1)
Quarter: 2013Q3

REPORT INFORMATION
  Report Type: Spontaneous
  Country: US (occurrence: None)
  Receive Date: 20130812
  Receipt Date: 20130812
  Transmission Date: 20140515
  Serious: Yes (Other)
  Sender: FDA-Public Use
  Company Number: None

PATIENT
  Age: 35 Year
  Sex: 0

DRUGS (1)
  1. BUPROPRION XL [Suspect]
     Indication: DEPRESSION
     Dosage: 1 PILL ONCE DAILY
     Route: 048

REACTIONS (4)
  - Product substitution issue [None]
  - Economic problem [None]
  - Suicidal ideation [None]
  - Depression [None]
